FAERS Safety Report 24634209 (Version 1)
Quarter: 2024Q4

REPORT INFORMATION
  Report Type: Spontaneous
  Country: US (occurrence: None)
  Receive Date: 20241119
  Receipt Date: 20241119
  Transmission Date: 20250114
  Serious: Yes (Other)
  Sender: CMP PHARMA
  Company Number: US-CMPPHARMA-000008

PATIENT
  Age: 64 Year
  Sex: Male

DRUGS (3)
  1. TRIANEX [Suspect]
     Active Substance: TRIAMCINOLONE ACETONIDE
     Indication: Osteoarthritis
     Dosage: INJECTION
     Dates: start: 2016
  2. CARBOXYMETHYLCELLULOSE [Suspect]
     Active Substance: CARBOXYMETHYLCELLULOSE
     Indication: Product used for unknown indication
     Dosage: INJECTION
     Dates: start: 2016
  3. LIDOCAINE [Concomitant]
     Active Substance: LIDOCAINE
     Dosage: INJECTION
     Dates: start: 2016

REACTIONS (3)
  - Type I hypersensitivity [Recovered/Resolved]
  - Off label use [Unknown]
  - Anaphylactic reaction [Recovered/Resolved]

NARRATIVE: CASE EVENT DATE: 20160101
